FAERS Safety Report 7920434 (Version 2)
Quarter: 2013Q1

REPORT INFORMATION
  Report Type: Spontaneous
  Country: US (occurrence: None)
  Receive Date: 20110407
  Receipt Date: 20121009
  Transmission Date: 20140127
  Serious: Yes (Other)
  Sender: FDA-Public Use
  Company Number: 2011MA002971

PATIENT
  Sex: Female

DRUGS (38)
  1. METOCLOPRAMIDE [Suspect]
     Indication: PRODUCT USED FOR UNKNOWN INDICATION
     Route: 048
     Dates: start: 19990302, end: 20061109
  2. FOSAMAX [Concomitant]
  3. WELLBUTRIN [Concomitant]
  4. CYCLOBENZAPRINE [Concomitant]
  5. OXYCODONE [Concomitant]
  6. LEVOXYL [Concomitant]
  7. PROTONIX [Concomitant]
  8. FLUOXETINE [Concomitant]
  9. FUROSEMIDE [Concomitant]
  10. HYDROCODONE W/APAP [Concomitant]
  11. VYTORIN [Concomitant]
  12. SULFAMETH/TRIMETHOPRIM [Concomitant]
  13. PROMETHAZINE [Concomitant]
  14. PRAVACHOL [Concomitant]
  15. MIGRIN-A [Concomitant]
  16. ZITHROMAX [Concomitant]
  17. ZOFRAN [Concomitant]
  18. PHENTERMINE [Concomitant]
  19. PENTAZOCINE/NALOXONE [Concomitant]
  20. DIPHENOXYLATE/ATROPINE [Concomitant]
  21. NAPROXEN [Concomitant]
  22. DIETHYLPROPION [Concomitant]
  23. CEPHALEXIN [Concomitant]
  24. BUTALBITAL/ASPIRINE/CAFFEINE [Concomitant]
  25. CLINDAMYCIN [Concomitant]
  26. CLARINEX [Concomitant]
  27. VERAPAMIL [Concomitant]
  28. AMANTADINE [Concomitant]
  29. PROPOXYPHENE [Concomitant]
  30. MAXALT [Concomitant]
  31. NITROQUICK [Concomitant]
  32. TRIMETHOBENZAMIDE [Concomitant]
  33. PREDNISONE [Concomitant]
  34. DIPHENHYDRAMINE [Concomitant]
  35. DURADRIN [Concomitant]
  36. FAMOTIDINE [Concomitant]
  37. SYNTHROID [Concomitant]
  38. AXID [Concomitant]

REACTIONS (10)
  - Tardive dyskinesia [None]
  - Dystonia [None]
  - Akathisia [None]
  - Extrapyramidal disorder [None]
  - Tremor [None]
  - Injury [None]
  - Dyskinesia [None]
  - Economic problem [None]
  - Emotional disorder [None]
  - Family stress [None]
